FAERS Safety Report 15674798 (Version 1)
Quarter: 2018Q4

REPORT INFORMATION
  Report Type: Report from Study
  Country: JP (occurrence: JP)
  Receive Date: 20181130
  Receipt Date: 20181130
  Transmission Date: 20190205
  Serious: Yes (Hospitalization)
  Sender: FDA-Public Use
  Company Number: JP-UCBSA-2018051967

PATIENT
  Age: 20 Year
  Sex: Female
  Weight: 29 kg

DRUGS (8)
  1. CERCINE [Concomitant]
     Active Substance: DIAZEPAM
     Indication: SIMPLE PARTIAL SEIZURES
     Dosage: 1.2G DAILY DOSE
     Route: 048
     Dates: end: 20170829
  2. TEGRETOL [Concomitant]
     Active Substance: CARBAMAZEPINE
     Indication: SIMPLE PARTIAL SEIZURES
     Dosage: 50 MG, UNK
     Route: 048
     Dates: start: 20171027
  3. MYSTAN [Concomitant]
     Active Substance: CLOBAZAM
     Dosage: 1.5 G, UNK
     Route: 048
     Dates: start: 20170508, end: 20170604
  4. LACOSAMIDE. [Suspect]
     Active Substance: LACOSAMIDE
     Indication: SIMPLE PARTIAL SEIZURES
     Dosage: 50 MG, 2X/DAY (BID)
     Route: 048
     Dates: start: 20170829, end: 20171009
  5. E KEPPRA [Concomitant]
     Active Substance: LEVETIRACETAM
     Dosage: 1000 MG DAILY DOSE
     Route: 048
     Dates: start: 20170731, end: 20170828
  6. E KEPPRA [Concomitant]
     Active Substance: LEVETIRACETAM
     Indication: SIMPLE PARTIAL SEIZURES
     Dosage: 400 MG DAILY DOSE
     Route: 048
     Dates: start: 20170704, end: 20170730
  7. MYSTAN [Concomitant]
     Active Substance: CLOBAZAM
     Indication: SIMPLE PARTIAL SEIZURES
     Dosage: 1 G, UNK
     Route: 048
     Dates: end: 20170507
  8. MYSTAN [Concomitant]
     Active Substance: CLOBAZAM
     Dosage: 2 G, UNK
     Route: 048
     Dates: start: 20170605

REACTIONS (2)
  - Pneumonia [Recovered/Resolved]
  - Salivary hypersecretion [Recovered/Resolved]

NARRATIVE: CASE EVENT DATE: 201710
